FAERS Safety Report 17101712 (Version 1)
Quarter: 2019Q4

REPORT INFORMATION
  Report Type: Spontaneous
  Country: JP (occurrence: JP)
  Receive Date: 20191202
  Receipt Date: 20191202
  Transmission Date: 20200122
  Serious: Yes (Death, Life-Threatening, Other)
  Sender: FDA-Public Use
  Company Number: JP-OTSUKA-000621

PATIENT
  Age: 43 Year
  Sex: Male

DRUGS (7)
  1. FILGRASTIM [Concomitant]
     Active Substance: FILGRASTIM
     Dosage: UNK
     Route: 065
     Dates: start: 20070404, end: 20070415
  2. VALPROATE SODIUM. [Concomitant]
     Active Substance: VALPROATE SODIUM
     Indication: PRODUCT USED FOR UNKNOWN INDICATION
     Dosage: UNK DF, QD
     Route: 065
     Dates: start: 20070321, end: 20070326
  3. BUSULFEX [Suspect]
     Active Substance: BUSULFAN
     Indication: STEM CELL TRANSPLANT
     Dosage: 36 ML, QD
     Route: 042
     Dates: start: 20070322, end: 20070325
  4. FILGRASTIM [Concomitant]
     Active Substance: FILGRASTIM
     Indication: PRODUCT USED FOR UNKNOWN INDICATION
     Dosage: UNK DF, QD
     Route: 065
     Dates: start: 20070329, end: 20070330
  5. LENOGRASTIM [Concomitant]
     Active Substance: LENOGRASTIM
     Indication: PRODUCT USED FOR UNKNOWN INDICATION
     Dosage: UNK DF, QD
     Route: 065
     Dates: start: 20070404, end: 20070415
  6. FLUDARABINE PHOSPHATE. [Concomitant]
     Active Substance: FLUDARABINE PHOSPHATE
     Indication: PRODUCT USED FOR UNKNOWN INDICATION
     Dosage: UNK DF, QD
     Route: 065
     Dates: start: 20070320, end: 20070325
  7. TACROLIMUS MONOHYDRATE [Concomitant]
     Active Substance: TACROLIMUS
     Indication: PRODUCT USED FOR UNKNOWN INDICATION
     Dosage: UNK DF, QD
     Route: 065
     Dates: start: 20070329, end: 20070330

REACTIONS (11)
  - Meningitis viral [Unknown]
  - Nausea [Unknown]
  - Diarrhoea [Unknown]
  - Renal impairment [Fatal]
  - Sepsis [Recovering/Resolving]
  - Hepatic function abnormal [Unknown]
  - Acute graft versus host disease [Unknown]
  - Stomatitis [Unknown]
  - Decreased appetite [Unknown]
  - Malaise [Unknown]
  - Acute myeloid leukaemia recurrent [Fatal]

NARRATIVE: CASE EVENT DATE: 20070409
